FAERS Safety Report 9275519 (Version 1)
Quarter: 2013Q2

REPORT INFORMATION
  Report Type: Spontaneous
  Country: US (occurrence: US)
  Receive Date: 20130507
  Receipt Date: 20130507
  Transmission Date: 20140414
  Serious: No
  Sender: FDA-Public Use
  Company Number: US-PFIZER INC-2013138663

PATIENT
  Age: 75 Year
  Sex: Male
  Weight: 72.56 kg

DRUGS (6)
  1. VIAGRA [Suspect]
     Indication: ERECTILE DYSFUNCTION
     Dosage: 100 MG, SINGLE
     Dates: start: 201304, end: 201304
  2. METFORMIN [Concomitant]
     Indication: DIABETES MELLITUS
     Dosage: 1000 MG, 2X/DAY
  3. METOPROLOL [Concomitant]
     Indication: CARDIAC DISORDER
     Dosage: 25 MG, UNK
  4. LISINOPRIL [Concomitant]
     Indication: BLOOD PRESSURE ABNORMAL
     Dosage: 2.5 MG, 1X/DAY
  5. LISINOPRIL [Concomitant]
     Indication: ADJUVANT THERAPY
  6. PRAVASTATIN [Concomitant]
     Indication: CARDIAC DISORDER
     Dosage: 80 MG, 1X/DAY

REACTIONS (3)
  - Drug ineffective [Unknown]
  - Chromatopsia [Recovered/Resolved]
  - Dizziness [Recovered/Resolved]
